FAERS Safety Report 5745276-3 (Version None)
Quarter: 2008Q2

REPORT INFORMATION
  Report Type: 
  Country: None (occurrence: None)
  Receive Date: 20080521
  Receipt Date: 20080515
  Transmission Date: 20081010
  Serious: Yes (Death, Other)
  Sender: FDA-Public Use
  Company Number: MY-BAYER-200818514GPV

PATIENT
  Age: 52 Year
  Sex: Male
  Weight: 71 kg

DRUGS (20)
  1. CAMPATH [Suspect]
     Indication: ANAPLASTIC LARGE CELL LYMPHOMA T- AND NULL-CELL TYPES
     Route: 058
     Dates: start: 20071025, end: 20071025
  2. CAMPATH [Suspect]
     Route: 058
     Dates: start: 20071028, end: 20071028
  3. CAMPATH [Suspect]
     Route: 058
     Dates: start: 20071127, end: 20071127
  4. CAMPATH [Suspect]
     Route: 058
     Dates: start: 20080205, end: 20080205
  5. CAMPATH [Suspect]
     Route: 058
     Dates: start: 20071130, end: 20071130
  6. CAMPATH [Suspect]
     Route: 058
     Dates: start: 20080105, end: 20080105
  7. CAMPATH [Suspect]
     Route: 058
     Dates: start: 20080102, end: 20080102
  8. CYCLOPHOSPHAMIDE [Concomitant]
     Indication: ANAPLASTIC LARGE CELL LYMPHOMA T- AND NULL-CELL TYPES
  9. VINCRISTINE [Concomitant]
     Indication: ANAPLASTIC LARGE CELL LYMPHOMA T- AND NULL-CELL TYPES
  10. DOXORUBICIN HCL [Concomitant]
     Indication: ANAPLASTIC LARGE CELL LYMPHOMA T- AND NULL-CELL TYPES
  11. DEXAMETHASONE TAB [Concomitant]
     Indication: ANAPLASTIC LARGE CELL LYMPHOMA T- AND NULL-CELL TYPES
  12. CYTARABINE [Concomitant]
     Indication: ANAPLASTIC LARGE CELL LYMPHOMA T- AND NULL-CELL TYPES
  13. MESNA [Concomitant]
     Indication: ANAPLASTIC LARGE CELL LYMPHOMA T- AND NULL-CELL TYPES
  14. METHOTREXATE [Concomitant]
     Indication: ANAPLASTIC LARGE CELL LYMPHOMA T- AND NULL-CELL TYPES
  15. LEUCOVORIN CALCIUM [Concomitant]
     Indication: ANAPLASTIC LARGE CELL LYMPHOMA T- AND NULL-CELL TYPES
  16. ACYCLOVIR SODIUM [Concomitant]
     Indication: ANTIVIRAL PROPHYLAXIS
  17. BACTRIM [Concomitant]
     Indication: ANTIBIOTIC PROPHYLAXIS
  18. FLUCONAZOLE [Concomitant]
     Indication: ANTIFUNGAL PROPHYLAXIS
  19. SYMBICORT TURBOHALER [Concomitant]
     Route: 055
  20. THEOPHYLLINE [Concomitant]

REACTIONS (2)
  - DEATH [None]
  - NEUTROPENIC SEPSIS [None]
